FAERS Safety Report 16760366 (Version 2)
Quarter: 2019Q4

REPORT INFORMATION
  Report Type: Spontaneous
  Country: CN (occurrence: CN)
  Receive Date: 20190830
  Receipt Date: 20191127
  Transmission Date: 20200122
  Serious: Yes (Other)
  Sender: FDA-Public Use
  Company Number: CN-ASTRAZENECA-2019SF22770

PATIENT
  Age: 57 Year
  Sex: Male
  Weight: 82 kg

DRUGS (1)
  1. ROSUVASTATIN CALCIUM. [Suspect]
     Active Substance: ROSUVASTATIN CALCIUM
     Indication: LIPIDS ABNORMAL
     Route: 048
     Dates: start: 20190628, end: 20190721

REACTIONS (2)
  - Drug-induced liver injury [Unknown]
  - Hepatic function abnormal [Recovered/Resolved]

NARRATIVE: CASE EVENT DATE: 20190721
